FAERS Safety Report 15956529 (Version 1)
Quarter: 2019Q1

REPORT INFORMATION
  Report Type: Spontaneous
  Country: US (occurrence: US)
  Receive Date: 20190122
  Receipt Date: 20190122
  Transmission Date: 20190417
  Serious: No
  Sender: FDA-Public Use
  Company Number: None

PATIENT
  Age: 37 Year
  Sex: Male

DRUGS (1)
  1. EPCLUSA [Suspect]
     Active Substance: SOFOSBUVIR\VELPATASVIR
     Dates: start: 20181228

REACTIONS (4)
  - Nausea [None]
  - Feeling cold [None]
  - Vomiting [None]
  - Product dose omission [None]

NARRATIVE: CASE EVENT DATE: 20190122
